FAERS Safety Report 4305323-2 (Version None)
Quarter: 2004Q1

REPORT INFORMATION
  Report Type: 
  Country: None (occurrence: None)
  Receive Date: 20040226
  Receipt Date: 20030512
  Transmission Date: 20041129
  Serious: No
  Sender: FDA-Public Use
  Company Number: US-BRISTOL-MYERS SQUIBB COMPANY-12274023

PATIENT
  Age: 67 Year
  Sex: Female
  Weight: 61 kg

DRUGS (8)
  1. TAXOL [Suspect]
     Indication: BREAST CANCER
     Route: 042
     Dates: start: 20030430, end: 20030430
  2. KYTRIL [Concomitant]
     Indication: PREMEDICATION
     Route: 042
  3. DECADRON [Concomitant]
     Indication: PREMEDICATION
     Route: 042
  4. BENADRYL [Concomitant]
     Indication: PREMEDICATION
     Route: 042
  5. ZANTAC [Concomitant]
     Indication: PREMEDICATION
     Route: 042
  6. SYNTHROID [Concomitant]
  7. MEGACE [Concomitant]
  8. HERBAL MIXTURE [Concomitant]

REACTIONS (1)
  - HYPERTENSION [None]
